FAERS Safety Report 23184299 (Version 2)
Quarter: 2023Q4

REPORT INFORMATION
  Report Type: Spontaneous
  Country: CO (occurrence: CO)
  Receive Date: 20231115
  Receipt Date: 20231229
  Transmission Date: 20240110
  Serious: Yes (Other)
  Sender: FDA-Public Use
  Company Number: CO-GLAXOSMITHKLINE-CO2023AMR151677

PATIENT

DRUGS (3)
  1. MEPOLIZUMAB [Suspect]
     Active Substance: MEPOLIZUMAB
     Indication: Asthma
     Dosage: 100 MG, Q4W (EVERY 28 DAYS)
     Dates: start: 20221024, end: 20230912
  2. MEPOLIZUMAB [Suspect]
     Active Substance: MEPOLIZUMAB
     Dosage: 100 MG
  3. NITROFURANTOIN [Suspect]
     Active Substance: NITROFURANTOIN
     Indication: Urine abnormality
     Dosage: UNK

REACTIONS (16)
  - Choking [Not Recovered/Not Resolved]
  - Asphyxia [Unknown]
  - Dizziness [Unknown]
  - Urinary tract infection [Recovering/Resolving]
  - Peripheral swelling [Unknown]
  - Fatigue [Unknown]
  - Blood pressure decreased [Unknown]
  - Urine abnormality [Unknown]
  - Urine odour abnormal [Unknown]
  - Chromaturia [Unknown]
  - Dysuria [Unknown]
  - Asthma [Unknown]
  - Malaise [Unknown]
  - Dyspnoea [Unknown]
  - Back pain [Not Recovered/Not Resolved]
  - Product use in unapproved indication [Unknown]

NARRATIVE: CASE EVENT DATE: 20231030
